FAERS Safety Report 18318070 (Version 3)
Quarter: 2021Q1

REPORT INFORMATION
  Report Type: Spontaneous
  Country: US (occurrence: US)
  Receive Date: 20200928
  Receipt Date: 20210208
  Transmission Date: 20210419
  Serious: Yes (Other)
  Sender: FDA-Public Use
  Company Number: US-PFIZER INC-2020368915

PATIENT
  Age: 89 Year
  Sex: Female

DRUGS (2)
  1. TYLENOL [Concomitant]
     Active Substance: ACETAMINOPHEN
     Dosage: UNK
  2. XELJANZ XR [Suspect]
     Active Substance: TOFACITINIB CITRATE
     Indication: RHEUMATOID ARTHRITIS
     Dosage: 11 MG, 1X/DAY
     Route: 048
     Dates: start: 202008

REACTIONS (7)
  - Insomnia [Unknown]
  - Abdominal discomfort [Unknown]
  - Joint swelling [Unknown]
  - Contusion [Unknown]
  - Thrombosis [Unknown]
  - Limb injury [Recovered/Resolved]
  - Therapeutic product effect incomplete [Unknown]
